FAERS Safety Report 22010463 (Version 1)
Quarter: 2023Q1

REPORT INFORMATION
  Report Type: Report from Study
  Country: TH (occurrence: TH)
  Receive Date: 20230220
  Receipt Date: 20230220
  Transmission Date: 20230417
  Serious: Yes (Death)
  Sender: FDA-Public Use
  Company Number: TH-002147023-NVSC2021TH038031

PATIENT
  Sex: Female

DRUGS (2)
  1. ENTRESTO [Suspect]
     Active Substance: SACUBITRIL\VALSARTAN
     Indication: Cardiac failure
     Dosage: 0.5 DOSAGE FORM, BID (50 MG)
     Route: 048
  2. ENTRESTO [Suspect]
     Active Substance: SACUBITRIL\VALSARTAN
     Indication: Ejection fraction decreased
     Dosage: 200 MG, QD (1 TAB ONCE DAILY AFTER BREAKFAST)
     Route: 048

REACTIONS (5)
  - Death [Fatal]
  - Asthenia [Unknown]
  - Wrong technique in product usage process [Unknown]
  - Underdose [Unknown]
  - Incorrect dose administered [Unknown]
